FAERS Safety Report 5671523-2 (Version None)
Quarter: 2008Q1

REPORT INFORMATION
  Report Type: 
  Country: None (occurrence: None)
  Receive Date: 20080318
  Receipt Date: 20080311
  Transmission Date: 20080703
  Serious: Yes (Other)
  Sender: FDA-Public Use
  Company Number: US-BOEHRINGER INGELHEIM GMBH, GERMANY-2008-BP-03787BP

PATIENT
  Sex: Female

DRUGS (7)
  1. SPIRIVA [Suspect]
  2. ADVAIR DISKUS 100/50 [Suspect]
     Indication: CHRONIC OBSTRUCTIVE PULMONARY DISEASE
     Route: 055
     Dates: start: 20080101, end: 20080201
  3. ADVAIR DISKUS 100/50 [Suspect]
     Indication: ASTHMA
     Route: 055
     Dates: start: 20080201
  4. CLARITIN [Concomitant]
  5. TYLENOL (CAPLET) [Concomitant]
  6. MUCINEX [Concomitant]
  7. ALBUTEROL [Concomitant]

REACTIONS (2)
  - DRY EYE [None]
  - VISION BLURRED [None]
